FAERS Safety Report 14725274 (Version 1)
Quarter: 2018Q2

REPORT INFORMATION
  Report Type: Report from Study
  Country: US (occurrence: US)
  Receive Date: 20180405
  Receipt Date: 20180405
  Transmission Date: 20180711
  Serious: No
  Sender: FDA-Public Use
  Company Number: US-AMGEN-USASL2017162951

PATIENT
  Age: 64 Year
  Sex: Female

DRUGS (3)
  1. CITRACAL [Concomitant]
     Active Substance: CALCIUM CITRATE
     Dosage: 1200 MG, QD
  2. PROLIA [Suspect]
     Active Substance: DENOSUMAB
     Indication: OSTEOPOROSIS POSTMENOPAUSAL
     Dosage: UNK UNK, Q6MO
     Route: 065
  3. VITAMIN D [Concomitant]
     Active Substance: CHOLECALCIFEROL
     Dosage: 50000 MG, QWK

REACTIONS (13)
  - Pain in jaw [Unknown]
  - Urticaria [Recovered/Resolved]
  - Blood cholesterol increased [Unknown]
  - Cystitis [Not Recovered/Not Resolved]
  - Back pain [Unknown]
  - Temporomandibular joint syndrome [Recovered/Resolved]
  - Urinary tract infection [Not Recovered/Not Resolved]
  - Arthralgia [Unknown]
  - Myalgia [Unknown]
  - Sciatica [Unknown]
  - Pain in extremity [Unknown]
  - Immune system disorder [Unknown]
  - Bedridden [Unknown]

NARRATIVE: CASE EVENT DATE: 2017
